FAERS Safety Report 4915135-4 (Version None)
Quarter: 2006Q1

REPORT INFORMATION
  Report Type: 
  Country: None (occurrence: None)
  Receive Date: 20060215
  Receipt Date: 20060215
  Transmission Date: 20060701
  Serious: Yes (Life-Threatening, Hospitalization, Disabling, Other)
  Sender: FDA-Public Use
  Company Number: None

PATIENT
  Age: 48 Year
  Sex: Female
  Weight: 81.6475 kg

DRUGS (3)
  1. CORICIDIN SINUS H/A(X-STR) (CHLORPHENIRAMINE/PHENYLPRO TABLETS [Suspect]
     Indication: NASOPHARYNGITIS
     Dosage: ONE DOSE ORAL
     Route: 048
  2. TAVIST-D [Suspect]
     Dosage: BID ORAL
     Route: 048
     Dates: start: 19960317, end: 19960318
  3. CONTAC [Suspect]
     Dosage: ORAL
     Route: 048

REACTIONS (16)
  - AMNESIA [None]
  - ANGER [None]
  - ANXIETY [None]
  - ATTENTION DEFICIT/HYPERACTIVITY DISORDER [None]
  - BALANCE DISORDER [None]
  - CEREBRAL HAEMATOMA [None]
  - COGNITIVE DISORDER [None]
  - CONVULSION [None]
  - DEPRESSION [None]
  - HAEMORRHAGIC STROKE [None]
  - HEADACHE [None]
  - MIDDLE INSOMNIA [None]
  - NAUSEA [None]
  - RUPTURED CEREBRAL ANEURYSM [None]
  - VOMITING [None]
  - WEIGHT DECREASED [None]
